FAERS Safety Report 20983057 (Version 1)
Quarter: 2022Q2

REPORT INFORMATION
  Report Type: Spontaneous
  Country: US (occurrence: US)
  Receive Date: 20220620
  Receipt Date: 20220620
  Transmission Date: 20220720
  Serious: No
  Sender: FDA-Public Use
  Company Number: US-009507513-2206USA004786

PATIENT
  Age: 11 Year
  Sex: Female

DRUGS (2)
  1. TEMODAR [Suspect]
     Active Substance: TEMOZOLOMIDE
     Indication: Nephroblastoma
     Dosage: 40 MG/M2, ON DAYS 1-5, 8.12 AND 15-19
     Route: 048
  2. IRINOTECAN [Concomitant]
     Active Substance: IRINOTECAN
     Indication: Nephroblastoma
     Dosage: 90 MG/M2, ON DAYS 1-5
     Route: 048

REACTIONS (1)
  - Off label use [Unknown]
